FAERS Safety Report 23213554 (Version 2)
Quarter: 2023Q4

REPORT INFORMATION
  Report Type: Report from Study
  Country: FR (occurrence: FR)
  Receive Date: 20231121
  Receipt Date: 20231212
  Transmission Date: 20240109
  Serious: Yes (Hospitalization, Disabling, Other)
  Sender: FDA-Public Use
  Company Number: FR-ALXN-A202302106

PATIENT
  Age: 64 Year
  Sex: Male
  Weight: 51 kg

DRUGS (14)
  1. STRENSIQ [Suspect]
     Active Substance: ASFOTASE ALFA
     Indication: Hypophosphatasia
     Dosage: 1 MILLIGRAM/KILOGRAM, SIX TIMES/WEEK
     Route: 058
     Dates: start: 20190904, end: 20210319
  2. STRENSIQ [Suspect]
     Active Substance: ASFOTASE ALFA
     Dosage: 1 MILLIGRAM/KILOGRAM
     Route: 058
     Dates: start: 20210319, end: 20210604
  3. STRENSIQ [Suspect]
     Active Substance: ASFOTASE ALFA
     Dosage: 1 MILLIGRAM/KILOGRAM
     Route: 058
     Dates: start: 20210604, end: 20221122
  4. STRENSIQ [Suspect]
     Active Substance: ASFOTASE ALFA
     Dosage: 1 MILLIGRAM/KILOGRAM
     Route: 058
     Dates: start: 20221122
  5. KAYEXALATE [Concomitant]
     Active Substance: SODIUM POLYSTYRENE SULFONATE
     Indication: Renal failure
     Dosage: UNK
     Route: 048
  6. ARANESP [Concomitant]
     Active Substance: DARBEPOETIN ALFA
     Indication: Renal failure
     Dosage: UNK
     Route: 065
  7. IRBESARTAN [Concomitant]
     Active Substance: IRBESARTAN
     Indication: Hypertension
     Dosage: UNK
     Route: 048
  8. TAHOR [Concomitant]
     Active Substance: ATORVASTATIN CALCIUM
     Indication: Hypertension
     Dosage: UNK
     Route: 048
  9. EZETIMIBE [Concomitant]
     Active Substance: EZETIMIBE
     Indication: Dyslipidaemia
     Dosage: UNK
     Route: 048
  10. ALLOPURINOL [Concomitant]
     Active Substance: ALLOPURINOL
     Indication: Renal failure
     Dosage: UNK
     Route: 048
  11. FERROUS SULFATE [Concomitant]
     Active Substance: FERROUS SULFATE
     Indication: Anaemia
     Dosage: UNK
     Route: 048
  12. AMLODIPINE [Concomitant]
     Active Substance: AMLODIPINE BESYLATE
     Indication: Hypertension
     Dosage: UNK
     Route: 048
  13. SKENAN [Concomitant]
     Active Substance: MORPHINE SULFATE
     Indication: Bone pain
     Dosage: UNK
     Route: 048
  14. ACETAMINOPHEN [Concomitant]
     Active Substance: ACETAMINOPHEN
     Indication: Bone pain
     Dosage: UNK
     Route: 048

REACTIONS (3)
  - Intra-abdominal calcification [Not Recovered/Not Resolved]
  - Peritonitis [Recovered/Resolved with Sequelae]
  - Ascites [Not Recovered/Not Resolved]

NARRATIVE: CASE EVENT DATE: 20200424
